FAERS Safety Report 23197709 (Version 3)
Quarter: 2024Q2

REPORT INFORMATION
  Report Type: Report from Study
  Country: BE (occurrence: BE)
  Receive Date: 20231117
  Receipt Date: 20240619
  Transmission Date: 20240717
  Serious: Yes (Hospitalization, Other)
  Sender: FDA-Public Use
  Company Number: None

PATIENT
  Age: 85 Year
  Sex: Male

DRUGS (14)
  1. TAMSULOSIN [Suspect]
     Active Substance: TAMSULOSIN
     Indication: Benign prostatic hyperplasia
     Dosage: DOSAGE TEXT: 0.4 MG, QD: TAMSULOSINE [TAMSULOSIN]
     Route: 048
     Dates: end: 20231004
  2. EDOXABAN [Suspect]
     Active Substance: EDOXABAN
     Indication: Thrombosis prophylaxis
     Dosage: DOSAGE TEXT: 30 MG, QD
     Route: 048
     Dates: start: 20230315, end: 20231004
  3. DAPAGLIFLOZIN [Suspect]
     Active Substance: DAPAGLIFLOZIN
     Indication: Cardiac failure
     Dosage: DOSAGE TEXT: 10 MG, QD
     Route: 048
     Dates: start: 20230315, end: 20231004
  4. ACORAMIDIS [Concomitant]
     Active Substance: ACORAMIDIS
     Indication: Cardiac amyloidosis
     Dosage: UNK, LAST DOSE PRIOR TO THE EVENT ONSET WAS ON 30-SEP-2023
     Route: 065
     Dates: start: 20220816, end: 20220930
  5. BUMETANIDE [Suspect]
     Active Substance: BUMETANIDE
     Indication: Cardiac failure
     Route: 048
     Dates: start: 20230927, end: 20231004
  6. CORDARONE [Concomitant]
     Active Substance: AMIODARONE HYDROCHLORIDE
     Indication: Atrial fibrillation
     Dosage: DOSAGE TEXT: 200 MG
     Route: 048
     Dates: start: 20230309
  7. SPIRONOLACTONE [Concomitant]
     Active Substance: SPIRONOLACTONE
     Indication: Product used for unknown indication
     Route: 048
     Dates: end: 20231004
  8. ENOXAPARIN SODIUM [Concomitant]
     Active Substance: ENOXAPARIN SODIUM
     Indication: Thrombosis
     Dosage: 40 MG, QID (0.25/DAY): CLEXANE (ENOXAPARIN)
     Route: 058
     Dates: start: 20231004
  9. SIMVASTATIN [Concomitant]
     Active Substance: SIMVASTATIN
     Indication: Hypercholesterolaemia
     Dosage: DOSAGE TEXT: 20 MG
     Route: 048
  10. BISOPROLOL [Concomitant]
     Active Substance: BISOPROLOL\BISOPROLOL FUMARATE
     Indication: Hypertension
     Route: 048
     Dates: start: 20230426
  11. FENOTEROL HYDROBROMIDE [Concomitant]
     Active Substance: FENOTEROL HYDROBROMIDE
     Indication: Pneumonia
     Dosage: 50/20 UG PER DOSE (0.1 OUNCE) FOR TIMES MILKED (KID): DUOVENT (FENOTEROL, IPROTROPIUM)
     Route: 055
     Dates: start: 20230924
  12. PANTOMED [Concomitant]
     Indication: Gastric ulcer
     Dosage: DOSAGE TEXT: 40 MG, QD ,[PANTOPRAZOLE SODIUM SESQUIHYDRATE]
     Route: 048
  13. Entresto (sacubitril, valsartan) [Concomitant]
     Indication: Cardiac failure
     Dosage: 24/26 MG 0.5 TABLET TWICE DAILY (BID) PO: ENTRESTO (SACUBITRIL, VALSARTAN)
     Route: 048
     Dates: start: 20230522, end: 20231004
  14. 1-ALPHA LEO [Concomitant]
     Indication: Vitamin D deficiency
     Dosage: 0.25 UG QD PO SINCE 23MAY2023: 1-ALPHA LEO (ALFACALCIDOL)
     Route: 048
     Dates: start: 20230523

REACTIONS (4)
  - Hypotension [Unknown]
  - Acute kidney injury [Recovering/Resolving]
  - Cardiomegaly [Unknown]
  - Loss of consciousness [Unknown]

NARRATIVE: CASE EVENT DATE: 20231003
